FAERS Safety Report 5677021-4 (Version None)
Quarter: 2008Q1

REPORT INFORMATION
  Report Type: 
  Country: None (occurrence: None)
  Receive Date: 20080324
  Receipt Date: 20080311
  Transmission Date: 20080703
  Serious: Yes (Other)
  Sender: FDA-Public Use
  Company Number: US-AMGEN-QUU267987

PATIENT
  Sex: Female

DRUGS (2)
  1. ENBREL [Suspect]
     Indication: PSORIATIC ARTHROPATHY
     Route: 058
     Dates: start: 20020227
  2. UNSPECIFIED CONTRACEPTIVE [Concomitant]

REACTIONS (2)
  - LYMPHADENOPATHY [None]
  - SALIVARY GLAND ADENOMA [None]
